FAERS Safety Report 5655516-7 (Version None)
Quarter: 2008Q1

REPORT INFORMATION
  Report Type: 
  Country: None (occurrence: None)
  Receive Date: 20080307
  Receipt Date: 20080227
  Transmission Date: 20080703
  Serious: Yes (Hospitalization)
  Sender: FDA-Public Use
  Company Number: JP-ROCHE-550632

PATIENT
  Age: 77 Year
  Sex: Male

DRUGS (1)
  1. PEGASYS [Suspect]
     Route: 058
     Dates: start: 20040421, end: 20080207

REACTIONS (2)
  - CEREBRAL INFARCTION [None]
  - MULTIPLE SCLEROSIS [None]
